FAERS Safety Report 18590464 (Version 1)
Quarter: 2020Q4

REPORT INFORMATION
  Report Type: Spontaneous
  Country: US (occurrence: US)
  Receive Date: 20201208
  Receipt Date: 20201208
  Transmission Date: 20210114
  Serious: Yes (Other)
  Sender: FDA-Public Use
  Company Number: US-GLAXOSMITHKLINE-US2020AMR240577

PATIENT
  Sex: Female

DRUGS (1)
  1. ZEJULA [Suspect]
     Active Substance: NIRAPARIB
     Indication: GENITAL NEOPLASM MALIGNANT FEMALE
     Dosage: 300 MG, QD
     Route: 048
     Dates: start: 20201120, end: 20201130

REACTIONS (5)
  - Dyspnoea [Unknown]
  - Loss of personal independence in daily activities [Unknown]
  - Malignant pleural effusion [Unknown]
  - Vomiting [Unknown]
  - Emotional disorder [Unknown]
